FAERS Safety Report 20007776 (Version 1)
Quarter: 2021Q4

REPORT INFORMATION
  Report Type: Spontaneous
  Country: FR (occurrence: FR)
  Receive Date: 20211028
  Receipt Date: 20211028
  Transmission Date: 20220303
  Serious: Yes (Other)
  Sender: FDA-Public Use
  Company Number: None

PATIENT
  Age: 28 Year
  Sex: Male
  Weight: 60 kg

DRUGS (8)
  1. NOREPINEPHRINE\NOREPINEPHRINE BITARTRATE [Suspect]
     Active Substance: NOREPINEPHRINE\NOREPINEPHRINE BITARTRATE
     Indication: Product used for unknown indication
     Dosage: 48 MILLIGRAM, QD
     Route: 042
     Dates: start: 20210610, end: 20210621
  2. LINEZOLID [Suspect]
     Active Substance: LINEZOLID
     Indication: Antibiotic therapy
     Dosage: 600 MILLIGRAM, Q8H
     Route: 042
     Dates: start: 20210618, end: 20210624
  3. MEROPENEM [Suspect]
     Active Substance: MEROPENEM
     Indication: Antibiotic therapy
     Dosage: 1 DOSAGE FORM, QD
     Route: 042
     Dates: start: 20210618, end: 20210626
  4. NOVORAPID [Suspect]
     Active Substance: INSULIN ASPART
     Indication: Blood glucose fluctuation
     Dosage: UNK
     Route: 042
     Dates: start: 20210613, end: 20210625
  5. ACETAMINOPHEN [Suspect]
     Active Substance: ACETAMINOPHEN
     Indication: Pain
     Dosage: 1 DOSAGE FORM
     Route: 042
     Dates: start: 20210617, end: 20210624
  6. LOVENOX [Suspect]
     Active Substance: ENOXAPARIN SODIUM
     Indication: Anticoagulant therapy
     Dosage: 1 DOSAGE FORM, QD
     Route: 042
     Dates: start: 20210610, end: 20210704
  7. TERBUTALINE [Suspect]
     Active Substance: TERBUTALINE
     Indication: Bronchospasm
     Dosage: 3 DOSAGE FORM, QD
     Route: 055
     Dates: start: 20210613, end: 20210624
  8. PANTOPRAZOLE SODIUM [Suspect]
     Active Substance: PANTOPRAZOLE SODIUM
     Indication: Gastritis prophylaxis
     Dosage: 20 MILLIGRAM, QD
     Route: 042
     Dates: start: 20210610, end: 20210704

REACTIONS (1)
  - Eosinophilia [Not Recovered/Not Resolved]

NARRATIVE: CASE EVENT DATE: 20210620
